FAERS Safety Report 22144747 (Version 1)
Quarter: 2023Q1

REPORT INFORMATION
  Report Type: Spontaneous
  Country: GB (occurrence: GB)
  Receive Date: 20230328
  Receipt Date: 20230328
  Transmission Date: 20230418
  Serious: Yes (Other)
  Sender: FDA-Public Use
  Company Number: GB-PADAGIS-2023PAD00370

PATIENT

DRUGS (14)
  1. CYCLOSPORINE [Suspect]
     Active Substance: CYCLOSPORINE
     Indication: Chronic cutaneous lupus erythematosus
     Dosage: UNK
     Route: 065
  2. PREDNISOLONE [Suspect]
     Active Substance: PREDNISOLONE
     Indication: Chronic cutaneous lupus erythematosus
     Dosage: UNK
     Route: 065
  3. POTASSIUM IODIDE [Suspect]
     Active Substance: POTASSIUM IODIDE
     Indication: Chronic cutaneous lupus erythematosus
     Dosage: UNK
     Route: 065
  4. HYDROXYCHLOROQUINE [Suspect]
     Active Substance: HYDROXYCHLOROQUINE
     Indication: Chronic cutaneous lupus erythematosus
     Dosage: UNK
     Route: 065
  5. DOXYCYCLINE [Suspect]
     Active Substance: DOXYCYCLINE
     Indication: Chronic cutaneous lupus erythematosus
     Dosage: UNK
     Route: 065
  6. AZATHIOPRINE [Suspect]
     Active Substance: AZATHIOPRINE
     Indication: Chronic cutaneous lupus erythematosus
     Dosage: UNK
     Route: 065
  7. DAPSONE [Suspect]
     Active Substance: DAPSONE
     Indication: Chronic cutaneous lupus erythematosus
     Dosage: UNK
     Route: 065
  8. COLCHICINE [Suspect]
     Active Substance: COLCHICINE
     Indication: Chronic cutaneous lupus erythematosus
  9. MYCOPHENOLATE MOFETIL [Suspect]
     Active Substance: MYCOPHENOLATE MOFETIL
     Indication: Chronic cutaneous lupus erythematosus
     Dosage: UNK
     Route: 065
  10. CHLOROQUINE [Suspect]
     Active Substance: CHLOROQUINE
     Indication: Chronic cutaneous lupus erythematosus
     Dosage: UNK
     Route: 065
  11. RITUXIMAB [Suspect]
     Active Substance: RITUXIMAB
     Indication: Chronic cutaneous lupus erythematosus
     Dosage: UNK
     Route: 065
  12. CO-DYDRAMOL [Concomitant]
     Active Substance: ACETAMINOPHEN\DIHYDROCODEINE
     Indication: Panniculitis
     Dosage: UNK
     Route: 065
  13. GABAPENTIN [Concomitant]
     Active Substance: GABAPENTIN
     Indication: Panniculitis
     Dosage: UNK
     Route: 065
  14. NAPROXEN [Concomitant]
     Active Substance: NAPROXEN
     Indication: Panniculitis
     Dosage: UNK
     Route: 065

REACTIONS (1)
  - Drug ineffective for unapproved indication [Unknown]
